FAERS Safety Report 4449133-4 (Version None)
Quarter: 2004Q3

REPORT INFORMATION
  Report Type: 
  Country: None (occurrence: None)
  Receive Date: 20040913
  Receipt Date: 20040825
  Transmission Date: 20050211
  Serious: Yes (Hospitalization)
  Sender: FDA-Public Use
  Company Number: 204163

PATIENT
  Age: 64 Year
  Sex: Female

DRUGS (1)
  1. AVONEX [Suspect]
     Indication: MULTIPLE SCLEROSIS
     Dosage: 30 MCG QW IM
     Route: 030
     Dates: start: 20010718

REACTIONS (5)
  - BILE DUCT STENT INSERTION [None]
  - MIGRAINE [None]
  - SPLENECTOMY [None]
  - STENT REMOVAL [None]
  - VOMITING [None]
